FAERS Safety Report 5698183-9 (Version None)
Quarter: 2008Q2

REPORT INFORMATION
  Report Type: 
  Country: None (occurrence: None)
  Receive Date: 20080408
  Receipt Date: 20080401
  Transmission Date: 20081010
  Serious: Yes (Hospitalization, Other)
  Sender: FDA-Public Use
  Company Number: DE-PFIZER INC-2008025437

PATIENT
  Sex: Male
  Weight: 73 kg

DRUGS (4)
  1. CABASERIL [Suspect]
     Indication: PARKINSON'S DISEASE
     Route: 048
  2. LYRICA [Concomitant]
     Route: 048
  3. LANITOP [Concomitant]
     Route: 048
  4. ARLEVERT [Concomitant]
     Route: 048

REACTIONS (1)
  - HAEMOLYSIS [None]
